FAERS Safety Report 8821180 (Version 1)
Quarter: 2012Q4

REPORT INFORMATION
  Report Type: 
  Country: US (occurrence: US)
  Receive Date: 20121002
  Receipt Date: 20121002
  Transmission Date: 20130627
  Serious: Yes (Hospitalization, Other)
  Sender: FDA-Public Use
  Company Number: US-MERCK-1210USA000080

PATIENT
  Sex: Male

DRUGS (1)
  1. JANUMET [Suspect]
     Route: 048

REACTIONS (6)
  - Accident [Unknown]
  - Blood glucose increased [Unknown]
  - Pain [Unknown]
  - Surgery [Unknown]
  - Neoplasm malignant [Unknown]
  - Drug dose omission [Unknown]
